FAERS Safety Report 4502048-5 (Version None)
Quarter: 2004Q4

REPORT INFORMATION
  Report Type: 
  Country: None (occurrence: None)
  Receive Date: 20041116
  Receipt Date: 20020315
  Transmission Date: 20050328
  Serious: Yes (Death, Life-Threatening, Hospitalization)
  Sender: FDA-Public Use
  Company Number: US-MERCK-0203USA01798

PATIENT
  Age: 29 Year
  Sex: Female
  Weight: 65 kg

DRUGS (24)
  1. PRINIVIL [Suspect]
     Indication: HYPERTENSION
     Route: 048
     Dates: start: 19980101
  2. SYNTHROID [Concomitant]
     Indication: THYROID DISORDER
     Route: 065
     Dates: start: 19990429
  3. DILANTIN [Concomitant]
     Route: 065
     Dates: start: 19990506
  4. PRINIVIL [Suspect]
     Route: 048
     Dates: start: 19990428
  5. DILANTIN [Concomitant]
     Route: 065
     Dates: start: 19990408
  6. ZYRTEC [Concomitant]
     Indication: HYPERSENSITIVITY
     Route: 065
     Dates: start: 19990506
  7. KEFLEX [Concomitant]
     Route: 065
     Dates: start: 19990512
  8. PHOSLO [Concomitant]
     Route: 065
     Dates: start: 19990424
  9. TRAZODONE [Concomitant]
     Route: 065
     Dates: start: 19990507
  10. PEPCID [Concomitant]
     Route: 048
     Dates: start: 19990101
  11. ZESTRIL [Concomitant]
     Indication: HYPERTENSION
     Route: 065
     Dates: start: 19990414
  12. NORMODYNE [Concomitant]
     Indication: HYPERTENSION
     Route: 065
     Dates: start: 19990509
  13. NORMODYNE [Concomitant]
     Route: 065
     Dates: start: 19990509
  14. NEPHRO-VITE RX [Concomitant]
     Route: 065
     Dates: start: 19990123
  15. EPOGEN [Concomitant]
     Route: 065
  16. HYDRALAZINE [Concomitant]
     Route: 065
  17. LABETALOL HYDROCHLORIDE [Concomitant]
     Route: 065
  18. PROCARDIA XL [Concomitant]
     Route: 065
  19. RESTORIL [Concomitant]
     Route: 065
  20. ROCALTROL [Concomitant]
     Route: 065
  21. CALTRO [Concomitant]
     Route: 065
  22. VALPROIC ACID [Concomitant]
     Route: 065
  23. CATAPRES [Concomitant]
     Route: 065
  24. ALPRAZOLAM [Concomitant]
     Route: 065

REACTIONS (6)
  - ANAPHYLACTIC REACTION [None]
  - ANGIONEUROTIC OEDEMA [None]
  - CIRCULATORY COLLAPSE [None]
  - IDIOSYNCRATIC DRUG REACTION [None]
  - PULMONARY CONGESTION [None]
  - SHOCK [None]
